FAERS Safety Report 7594963-3 (Version None)
Quarter: 2011Q3

REPORT INFORMATION
  Report Type: 
  Country: None (occurrence: None)
  Receive Date: 20110707
  Receipt Date: 20110623
  Transmission Date: 20111222
  Serious: Yes (Hospitalization, Disabling, Other)
  Sender: FDA-Public Use
  Company Number: US-CELGENEUS-163-21880-11040279

PATIENT
  Sex: Male
  Weight: 97.7 kg

DRUGS (25)
  1. HYDROCHLOROTHIAZIDE [Concomitant]
     Indication: HYPERTENSION
     Dosage: 25 MILLIGRAM
     Route: 065
  2. MUCOMYST [Concomitant]
     Indication: PREMEDICATION
     Route: 065
     Dates: start: 20110301
  3. MULTI-VITAMINS [Concomitant]
     Route: 048
  4. METOPROLOL TARTRATE [Concomitant]
     Indication: HYPERTENSION
     Route: 065
  5. METRONIDAZOLE [Concomitant]
     Route: 065
     Dates: start: 20110301
  6. BICARBONATE [Concomitant]
     Indication: PREMEDICATION
     Route: 065
     Dates: start: 20110301
  7. RED BLOOD CELLS [Concomitant]
     Dosage: 2 UNITS
     Route: 051
     Dates: start: 20110301, end: 20110301
  8. ASPIRIN [Concomitant]
     Dosage: 81 MILLIGRAM
     Route: 065
  9. CALCIUM PLUS VITAMIN D [Concomitant]
     Dosage: 500/200
     Route: 048
  10. AMLODIPINE [Concomitant]
     Dosage: 5 MILLIGRAM
     Route: 065
  11. FLONASE [Concomitant]
     Route: 045
  12. PLAVIX [Concomitant]
     Dosage: 75 MILLIGRAM
     Route: 065
  13. LIPITOR [Concomitant]
     Dosage: 10 MILLIGRAM
     Route: 065
     Dates: start: 20110301
  14. FLOMAX [Concomitant]
     Dosage: .4 MILLIGRAM
     Route: 065
  15. LOVAZA [Concomitant]
     Dosage: 1 CAPSULE
     Route: 048
  16. REVLIMID [Suspect]
     Indication: MULTIPLE MYELOMA
     Dosage: 15 MILLIGRAM
     Route: 048
     Dates: start: 20110221, end: 20110311
  17. TAMIFLU [Concomitant]
     Indication: INFLUENZA
     Route: 065
     Dates: start: 20110301
  18. MELATONIN [Concomitant]
     Dosage: 3 MILLIGRAM
     Route: 065
  19. REVLIMID [Suspect]
     Dosage: 10 MILLIGRAM
     Route: 048
     Dates: start: 20110301, end: 20110101
  20. SENOKOT [Concomitant]
     Dosage: 1-2 TABLETS
     Route: 048
  21. OMEPRAZOLE [Concomitant]
     Dosage: 20 MILLIGRAM
     Route: 065
  22. POTASSIUM [Concomitant]
     Dosage: 40 MILLIEQUIVALENTS
     Route: 065
  23. ASPIRIN [Concomitant]
     Dosage: 325 MILLIGRAM
     Route: 065
  24. DEXAMETHASONE [Concomitant]
     Dosage: 40 MILLIGRAM
     Route: 065
  25. RED YEAST RICE [Concomitant]
     Dosage: 24 MILLIGRAM
     Route: 065

REACTIONS (7)
  - CEREBROVASCULAR ACCIDENT [None]
  - HAEMOGLOBIN DECREASED [None]
  - ELECTROCARDIOGRAM QT PROLONGED [None]
  - PLATELET COUNT DECREASED [None]
  - PRESYNCOPE [None]
  - INFLUENZA [None]
  - NEUTROPHIL COUNT DECREASED [None]
